FAERS Safety Report 10703549 (Version 1)
Quarter: 2015Q1

REPORT INFORMATION
  Report Type: Spontaneous
  Country: FR (occurrence: FR)
  Receive Date: 20150112
  Receipt Date: 20150112
  Transmission Date: 20150721
  Serious: Yes (Hospitalization)
  Sender: FDA-Public Use
  Company Number: PHHY2015FR001639

PATIENT
  Age: 44 Year
  Sex: Male

DRUGS (11)
  1. CYMBALTA [Interacting]
     Active Substance: DULOXETINE HYDROCHLORIDE
     Indication: PRODUCT USED FOR UNKNOWN INDICATION
     Dosage: 60 MG, QD
     Route: 048
  2. CORTANCYL [Interacting]
     Active Substance: PREDNISONE
     Indication: PRODUCT USED FOR UNKNOWN INDICATION
     Dosage: 20 MG, QD
     Route: 048
     Dates: start: 20140927
  3. TRILEPTAL [Interacting]
     Active Substance: OXCARBAZEPINE
     Dosage: 450 MG, BID
     Route: 048
     Dates: start: 20141116
  4. RIFINAH [Interacting]
     Active Substance: ISONIAZID\RIFAMPIN
     Indication: PRODUCT USED FOR UNKNOWN INDICATION
     Dosage: 1 DF (150 MG ISON/ 300 MG RIFA), BID
     Route: 048
     Dates: start: 20140915, end: 20141128
  5. REMICADE [Concomitant]
     Active Substance: INFLIXIMAB
     Dosage: 300 MG, FOURTH CURE
     Route: 042
     Dates: start: 20141202
  6. TRILEPTAL [Suspect]
     Active Substance: OXCARBAZEPINE
     Indication: PRODUCT USED FOR UNKNOWN INDICATION
     Dosage: 400 MG, BID
     Route: 048
     Dates: start: 201408, end: 20141115
  7. DEPAMIDE [Interacting]
     Active Substance: VALPROMIDE
     Indication: PRODUCT USED FOR UNKNOWN INDICATION
     Dosage: 300 MG, TID
     Route: 048
  8. REMICADE [Concomitant]
     Active Substance: INFLIXIMAB
     Dosage: 300 MG, THIRD CURE
     Route: 042
     Dates: start: 20141007
  9. LYSANXIA [Interacting]
     Active Substance: PRAZEPAM
     Indication: PRODUCT USED FOR UNKNOWN INDICATION
     Dosage: UNK OT, BID
     Route: 048
  10. REMICADE [Concomitant]
     Active Substance: INFLIXIMAB
     Indication: PRODUCT USED FOR UNKNOWN INDICATION
     Dosage: 300 MG, FIRST CURE
     Route: 042
     Dates: start: 20140825
  11. REMICADE [Concomitant]
     Active Substance: INFLIXIMAB
     Dosage: 300 MG, SECOND CURE
     Route: 042
     Dates: start: 20140909

REACTIONS (2)
  - Depression [Recovering/Resolving]
  - Tonic clonic movements [Recovering/Resolving]

NARRATIVE: CASE EVENT DATE: 201411
